FAERS Safety Report 22307403 (Version 1)
Quarter: 2023Q2

REPORT INFORMATION
  Report Type: Spontaneous
  Country: TW (occurrence: TW)
  Receive Date: 20230511
  Receipt Date: 20230511
  Transmission Date: 20230722
  Serious: Yes (Other)
  Sender: FDA-Public Use
  Company Number: TW-002147023-NVSC2022TW282411

PATIENT
  Sex: Female

DRUGS (3)
  1. CYCLOSPORINE [Suspect]
     Active Substance: CYCLOSPORINE
     Indication: Chronic graft versus host disease in skin
     Dosage: UNK
     Route: 065
     Dates: start: 20190325
  2. CYCLOSPORINE [Suspect]
     Active Substance: CYCLOSPORINE
     Indication: Chronic graft versus host disease in lung
  3. PREDNISOLONE [Suspect]
     Active Substance: PREDNISOLONE
     Indication: Product used for unknown indication
     Dosage: UNK
     Route: 065
     Dates: start: 20221116

REACTIONS (5)
  - Transplant failure [Unknown]
  - Graft versus host disease in skin [Unknown]
  - Disease progression [Unknown]
  - Lung disorder [Not Recovered/Not Resolved]
  - Leukocyte adhesion deficiency type I [Unknown]

NARRATIVE: CASE EVENT DATE: 20190326
